FAERS Safety Report 26124810 (Version 1)
Quarter: 2025Q4

REPORT INFORMATION
  Report Type: Report from Study
  Country: BR (occurrence: BR)
  Receive Date: 20251205
  Receipt Date: 20251205
  Transmission Date: 20260118
  Serious: Yes (Other)
  Sender: EMD SERONO INC
  Company Number: BR-Merck Healthcare KGaA-2025060844

PATIENT
  Age: 57 Year
  Sex: Male

DRUGS (1)
  1. INTERFERON BETA-1A [Suspect]
     Active Substance: INTERFERON BETA-1A
     Indication: Multiple sclerosis
     Dates: start: 20200919

REACTIONS (1)
  - Umbilical hernia [Recovering/Resolving]

NARRATIVE: CASE EVENT DATE: 20251119
